FAERS Safety Report 4431167-7 (Version None)
Quarter: 2004Q3

REPORT INFORMATION
  Report Type: 
  Country: None (occurrence: None)
  Receive Date: 20040824
  Receipt Date: 20040817
  Transmission Date: 20050211
  Serious: Yes (Hospitalization)
  Sender: FDA-Public Use
  Company Number: US-JNJFOC-20040602983

PATIENT
  Age: 60 Year
  Sex: Female

DRUGS (17)
  1. DURAGESIC [Suspect]
     Route: 062
     Dates: start: 20040301
  2. PREDNISONE [Concomitant]
     Route: 049
  3. FLEXERIL [Concomitant]
     Route: 049
  4. PLAQUENIL [Concomitant]
     Route: 049
  5. NEXIUM [Concomitant]
     Route: 049
  6. CELEBREX [Concomitant]
     Route: 049
  7. CITROCAL [Concomitant]
     Route: 049
  8. VITAMIN B COMPLEX CAP [Concomitant]
     Route: 049
  9. CELEXA [Concomitant]
     Indication: DEPRESSION
     Route: 049
  10. SINGULAIR [Concomitant]
     Route: 049
  11. FLOMAX [Concomitant]
     Route: 049
  12. SALAGEN [Concomitant]
     Route: 049
  13. FORTEO [Concomitant]
     Indication: PARATHYROID DISORDER
     Route: 050
  14. LASIX [Concomitant]
     Indication: DIURETIC THERAPY
     Route: 049
  15. VALIUM [Concomitant]
     Indication: ANXIETY
     Route: 049
  16. ROXICODONE [Concomitant]
     Indication: PAIN
     Route: 049
  17. NEURONTIN [Concomitant]
     Route: 049

REACTIONS (1)
  - PNEUMONIA [None]
